FAERS Safety Report 8572912 (Version 3)
Quarter: 2012Q4

REPORT INFORMATION
  Report Type: Report from Study
  Country: DE (occurrence: DE)
  Receive Date: 20120522
  Receipt Date: 20121227
  Transmission Date: 20130627
  Serious: Yes (Hospitalization)
  Sender: FDA-Public Use
  Company Number: PHHO2011DE02689

PATIENT
  Sex: Male
  Weight: 89 kg

DRUGS (6)
  1. AMN107 [Suspect]
     Indication: CHRONIC MYELOID LEUKAEMIA
     Dosage: 600 mg, UNK
     Route: 048
     Dates: start: 20101209, end: 20110209
  2. BELOC [Concomitant]
     Indication: CARDIAC DISORDER
  3. TOREM [Concomitant]
     Indication: CARDIAC DISORDER
  4. RAMIPRIL [Concomitant]
     Indication: CARDIAC DISORDER
  5. SIMVASTATIN [Concomitant]
     Indication: CARDIAC DISORDER
  6. ALLOPURINOL [Concomitant]
     Indication: CARDIAC DISORDER

REACTIONS (1)
  - Coronary artery disease [Recovering/Resolving]
